FAERS Safety Report 21639233 (Version 1)
Quarter: 2022Q4

REPORT INFORMATION
  Report Type: Spontaneous
  Country: CO (occurrence: CO)
  Receive Date: 20221124
  Receipt Date: 20221124
  Transmission Date: 20230113
  Serious: Yes (Hospitalization)
  Sender: FDA-Public Use
  Company Number: CO-ORPHANEU-2022005906

PATIENT

DRUGS (5)
  1. CARBAGLU [Suspect]
     Active Substance: CARGLUMIC ACID
     Indication: Hyperglycinaemia
     Dosage: 3 DOSAGE FORM (TABLET), QD
     Route: 048
     Dates: start: 20220817, end: 202211
  2. CARBAGLU [Suspect]
     Active Substance: CARGLUMIC ACID
     Dosage: 1 DOSAGE FORM (TABLET), QD
     Route: 048
     Dates: start: 20221103
  3. BIOTIN [Concomitant]
     Active Substance: BIOTIN
     Indication: Vitamin supplementation
     Dosage: 20 MILLIGRAM, QD (EVERY 24 HOURS)
     Dates: start: 20200827
  4. LEVOCARNITIN [Concomitant]
     Indication: Vitamin supplementation
     Dosage: 800 MILLIGRAM, Q8H
     Dates: start: 20200827
  5. BENZOIC ACID [Concomitant]
     Active Substance: BENZOIC ACID
     Indication: Hyperglycinaemia
     Dosage: 400 MILLIGRAM, Q8H
     Dates: start: 20200827

REACTIONS (3)
  - Diarrhoea [Recovered/Resolved]
  - Pyrexia [Recovered/Resolved]
  - Vomiting [Recovered/Resolved]

NARRATIVE: CASE EVENT DATE: 20221103
